FAERS Safety Report 7860065-1 (Version None)
Quarter: 2011Q4

REPORT INFORMATION
  Report Type: 
  Country: None (occurrence: None)
  Receive Date: 20111025
  Receipt Date: 20111020
  Transmission Date: 20120403
  Serious: Yes (Other)
  Sender: FDA-Public Use
  Company Number: 1000024856

PATIENT
  Sex: Male

DRUGS (1)
  1. VIIBRYD [Suspect]

REACTIONS (1)
  - MENTAL DISORDER [None]
